FAERS Safety Report 14423761 (Version 1)
Quarter: 2018Q1

REPORT INFORMATION
  Report Type: Spontaneous
  Country: US (occurrence: US)
  Receive Date: 20180122
  Receipt Date: 20180122
  Transmission Date: 20180509
  Serious: No
  Sender: FDA-Public Use
  Company Number: None

PATIENT
  Age: 60 Year
  Sex: Female
  Weight: 51.71 kg

DRUGS (1)
  1. XARELTO [Suspect]
     Active Substance: RIVAROXABAN
     Indication: DEEP VEIN THROMBOSIS
     Dosage: 20 MG 1 PILL 1X-BED
     Dates: start: 20171102, end: 20180111

REACTIONS (7)
  - Constipation [None]
  - Abdominal pain [None]
  - Blood blister [None]
  - Peripheral swelling [None]
  - Skin discolouration [None]
  - Muscle tightness [None]
  - Myalgia [None]

NARRATIVE: CASE EVENT DATE: 20171105
